FAERS Safety Report 24322862 (Version 1)
Quarter: 2024Q3

REPORT INFORMATION
  Report Type: Report from Study
  Country: IN (occurrence: IN)
  Receive Date: 20240916
  Receipt Date: 20240916
  Transmission Date: 20241016
  Serious: Yes (Death)
  Sender: ROCHE
  Company Number: IN-ROCHE-10000079403

PATIENT
  Age: 64 Year
  Sex: Female

DRUGS (1)
  1. PHESGO [Suspect]
     Active Substance: HYALURONIDASE-ZZXF\PERTUZUMAB\TRASTUZUMAB
     Indication: Breast cancer
     Route: 058
     Dates: start: 20240408

REACTIONS (4)
  - Diarrhoea [Fatal]
  - White blood cell count decreased [Fatal]
  - Heart rate decreased [Fatal]
  - Asthenia [Fatal]
